FAERS Safety Report 8391309-8 (Version None)
Quarter: 2012Q2

REPORT INFORMATION
  Report Type: 
  Country: None (occurrence: None)
  Receive Date: 20120529
  Receipt Date: 20111017
  Transmission Date: 20120825
  Serious: No
  Sender: FDA-Public Use
  Company Number: US-ABBOTT-11P-163-0866471-00

PATIENT
  Sex: Male
  Weight: 124.4 kg

DRUGS (17)
  1. SIMVASTATIN [Concomitant]
     Indication: URINARY TRACT DISORDER
  2. BACTROBAN [Concomitant]
     Indication: SKIN ULCER
  3. CARVEDILOL [Concomitant]
     Indication: PRODUCT USED FOR UNKNOWN INDICATION
  4. ZEMPLAR [Suspect]
     Indication: PROTEIN URINE PRESENT
     Route: 048
  5. ASPIRIN [Concomitant]
     Indication: CARDIAC DISORDER
  6. CHLORTHALIDONE [Concomitant]
     Indication: PRODUCT USED FOR UNKNOWN INDICATION
  7. DIOVAN [Concomitant]
     Indication: HYPERTENSION
  8. ZEMPLAR [Suspect]
     Indication: RENAL DISORDER
  9. LANTUS [Concomitant]
     Indication: DIABETES MELLITUS
  10. VITAMIN D [Suspect]
     Indication: VITAMIN SUPPLEMENTATION
  11. LISINOPRIL [Concomitant]
     Indication: HYPERTENSION
  12. ALLOPURINOL [Concomitant]
     Indication: BLOOD PRESSURE
  13. PERCOCET [Concomitant]
     Indication: PAIN
  14. FUROSEMIDE [Concomitant]
     Indication: OEDEMA PERIPHERAL
  15. CARDURA [Concomitant]
     Indication: PRODUCT USED FOR UNKNOWN INDICATION
  16. CLONIDINE [Concomitant]
     Indication: HYPERTENSION
  17. TESTIM [Concomitant]
     Indication: PRODUCT USED FOR UNKNOWN INDICATION
     Dosage: RUBBED ONTO SHOULDERS
     Route: 061

REACTIONS (2)
  - FATIGUE [None]
  - DYSPNOEA [None]
